FAERS Safety Report 6603284-4 (Version None)
Quarter: 2010Q1

REPORT INFORMATION
  Report Type: 
  Country: None (occurrence: None)
  Receive Date: 20100218
  Receipt Date: 20100205
  Transmission Date: 20100710
  Serious: Yes (Other)
  Sender: FDA-Public Use
  Company Number: 1000010481

PATIENT
  Age: 14 Year
  Sex: Female

DRUGS (1)
  1. ESCITALOPRAM [Suspect]
     Indication: PANIC ATTACK
     Dosage: 5 MG, ORAL
     Route: 048
     Dates: start: 20091101, end: 20091101

REACTIONS (1)
  - TONGUE DISORDER [None]
